FAERS Safety Report 12366256 (Version 1)
Quarter: 2016Q2

REPORT INFORMATION
  Report Type: Spontaneous
  Country: BR (occurrence: BR)
  Receive Date: 20160513
  Receipt Date: 20160513
  Transmission Date: 20160815
  Serious: Yes (Hospitalization, Other)
  Sender: FDA-Public Use
  Company Number: BR-ELI_LILLY_AND_COMPANY-BR201605003064

PATIENT
  Sex: Male
  Weight: 80 kg

DRUGS (21)
  1. HUMULIN R [Suspect]
     Active Substance: INSULIN HUMAN
     Dosage: 4 IU, EACH EVENING
     Route: 058
  2. AAS [Concomitant]
     Active Substance: ASPIRIN
  3. HUMULIN N [Suspect]
     Active Substance: INSULIN HUMAN
     Indication: DIABETES MELLITUS
     Dosage: 30 IU, EACH MORNING
     Route: 058
  4. ATENOLOL. [Concomitant]
     Active Substance: ATENOLOL
  5. GINKGO BILOBA [Concomitant]
     Active Substance: GINKGO
  6. HUMULIN N [Suspect]
     Active Substance: INSULIN HUMAN
     Dosage: 30 IU, EACH MORNING
     Route: 058
  7. HUMULIN N [Suspect]
     Active Substance: INSULIN HUMAN
     Dosage: 20 IU, QD
     Route: 058
  8. HUMULIN N [Suspect]
     Active Substance: INSULIN HUMAN
     Dosage: 20 IU, QD
     Route: 058
  9. HUMULIN R [Suspect]
     Active Substance: INSULIN HUMAN
     Dosage: 6 IU, QD
     Route: 058
     Dates: start: 201506
  10. HUMULIN R [Suspect]
     Active Substance: INSULIN HUMAN
     Dosage: 4 IU, EACH EVENING
     Route: 058
     Dates: start: 201506
  11. DEPURA [Concomitant]
     Active Substance: CHOLECALCIFEROL
  12. GLIFAGE [Concomitant]
     Active Substance: METFORMIN HYDROCHLORIDE
  13. HUMULIN N [Suspect]
     Active Substance: INSULIN HUMAN
     Dosage: 20 IU, EACH EVENING
     Route: 058
  14. HUMULIN R [Suspect]
     Active Substance: INSULIN HUMAN
     Dosage: 6 IU, QD
     Route: 058
  15. HUMULIN N [Suspect]
     Active Substance: INSULIN HUMAN
     Dosage: 20 IU, EACH EVENING
     Route: 058
  16. SECOTEX [Concomitant]
     Active Substance: TAMSULOSIN
  17. HUMULIN R [Suspect]
     Active Substance: INSULIN HUMAN
     Indication: DIABETES MELLITUS
     Dosage: 8 IU, EACH MORNING
     Route: 058
     Dates: start: 201506
  18. EXFORGE HCT [Concomitant]
     Active Substance: AMLODIPINE BESYLATE\HYDROCHLOROTHIAZIDE\VALSARTAN
  19. ATORVASTATINA [Concomitant]
     Active Substance: ATORVASTATIN
  20. HUMULIN R [Suspect]
     Active Substance: INSULIN HUMAN
     Dosage: 8 IU, EACH MORNING
     Route: 058
  21. JANUVIA [Concomitant]
     Active Substance: SITAGLIPTIN PHOSPHATE

REACTIONS (14)
  - Inner ear disorder [Not Recovered/Not Resolved]
  - Weight increased [Not Recovered/Not Resolved]
  - Renal failure [Not Recovered/Not Resolved]
  - Depression [Not Recovered/Not Resolved]
  - Injection site macule [Not Recovered/Not Resolved]
  - Cerebrovascular accident [Not Recovered/Not Resolved]
  - Swelling [Not Recovered/Not Resolved]
  - Injection site pain [Not Recovered/Not Resolved]
  - Blood glucose increased [Recovered/Resolved]
  - Diabetic hyperglycaemic coma [Recovered/Resolved]
  - Hemiparesis [Not Recovered/Not Resolved]
  - Fatigue [Unknown]
  - Incorrect product storage [Unknown]
  - Injection site haemorrhage [Not Recovered/Not Resolved]

NARRATIVE: CASE EVENT DATE: 2013
